FAERS Safety Report 20998669 (Version 12)
Quarter: 2025Q3

REPORT INFORMATION
  Report Type: Report from Study
  Country: EU (occurrence: EU)
  Receive Date: 20220623
  Receipt Date: 20250721
  Transmission Date: 20251020
  Serious: Yes (Hospitalization, Other)
  Sender: PFIZER
  Company Number: EU-PFM-2022-05095

PATIENT
  Age: 54 Year
  Sex: Male
  Weight: 83 kg

DRUGS (14)
  1. ENCORAFENIB [Suspect]
     Active Substance: ENCORAFENIB
     Indication: Malignant melanoma
     Dosage: 450 MG, 1X/DAY
     Route: 048
     Dates: start: 20201023, end: 20201205
  2. ENCORAFENIB [Suspect]
     Active Substance: ENCORAFENIB
     Dosage: 150 MG, 1X/DAY
     Route: 048
     Dates: start: 20210111
  3. ENCORAFENIB [Suspect]
     Active Substance: ENCORAFENIB
     Dosage: 225 MG, 1X/DAY
     Route: 048
     Dates: start: 20210125, end: 20210307
  4. ENCORAFENIB [Suspect]
     Active Substance: ENCORAFENIB
     Dosage: 300 MG, 1X/DAY
     Route: 048
     Dates: start: 20210327, end: 20210525
  5. ENCORAFENIB [Suspect]
     Active Substance: ENCORAFENIB
     Dosage: 150 MG, 1X/DAY
     Route: 048
     Dates: start: 20210706, end: 20211004
  6. ENCORAFENIB [Suspect]
     Active Substance: ENCORAFENIB
     Dosage: 225 MG, 1X/DAY
     Route: 048
     Dates: start: 20211006, end: 20211019
  7. BINIMETINIB [Suspect]
     Active Substance: BINIMETINIB
     Indication: Malignant melanoma
     Dosage: EVERY 12 HOURS
     Route: 048
     Dates: start: 20201023, end: 20201205
  8. BINIMETINIB [Suspect]
     Active Substance: BINIMETINIB
     Dosage: 30 MG, 1X/DAY
     Route: 048
     Dates: start: 20210111, end: 20210307
  9. BINIMETINIB [Suspect]
     Active Substance: BINIMETINIB
     Dosage: 45 MG, 1X/DAY
     Route: 048
     Dates: start: 20210308
  10. BINIMETINIB [Suspect]
     Active Substance: BINIMETINIB
     Dosage: 60 MG, 1X/DAY
     Route: 048
     Dates: start: 20210327, end: 20210525
  11. BINIMETINIB [Suspect]
     Active Substance: BINIMETINIB
     Dosage: 30 MG, 1X/DAY
     Route: 048
     Dates: start: 20210706, end: 20211004
  12. BINIMETINIB [Suspect]
     Active Substance: BINIMETINIB
     Dosage: 45 MG, 1X/DAY
     Route: 048
     Dates: start: 20211006
  13. ATORVASTATIN [Concomitant]
     Active Substance: ATORVASTATIN
     Indication: Hypercholesterolaemia
  14. VITAMIN D [Concomitant]
     Active Substance: VITAMIN D NOS
     Indication: Prophylaxis
     Dates: start: 20220214

REACTIONS (8)
  - Drug-induced liver injury [Recovered/Resolved]
  - Osteoarthritis [Recovered/Resolved]
  - Immune-mediated pancreatitis [Recovered/Resolved]
  - Lipase increased [Recovered/Resolved]
  - Gastroenteritis [Recovered/Resolved]
  - Myalgia [Recovered/Resolved]
  - Myalgia [Recovered/Resolved]
  - Lipase increased [Recovered/Resolved]

NARRATIVE: CASE EVENT DATE: 20201204
